FAERS Safety Report 8420170-8 (Version None)
Quarter: 2012Q2

REPORT INFORMATION
  Report Type: 
  Country: None (occurrence: None)
  Receive Date: 20120607
  Receipt Date: 20120531
  Transmission Date: 20120825
  Serious: Yes (Other)
  Sender: FDA-Public Use
  Company Number: CA-JNJFOC-20120600623

PATIENT
  Sex: Female
  Weight: 67.3 kg

DRUGS (6)
  1. REMICADE [Suspect]
     Indication: ANKYLOSING SPONDYLITIS
     Dates: start: 20090112
  2. CYCLOBENZAPRINE [Concomitant]
  3. LYRICA [Concomitant]
  4. MORPHINE [Concomitant]
     Route: 048
  5. REMICADE [Suspect]
     Indication: IRITIS
     Dates: start: 20090112
  6. CYMBALTA [Concomitant]

REACTIONS (1)
  - IRITIS [None]
